FAERS Safety Report 7526874-3 (Version None)
Quarter: 2011Q2

REPORT INFORMATION
  Report Type: 
  Country: None (occurrence: None)
  Receive Date: 20110606
  Receipt Date: 20110527
  Transmission Date: 20111010
  Serious: Yes (Hospitalization)
  Sender: FDA-Public Use
  Company Number: PHHO2011US09369

PATIENT
  Sex: Male
  Weight: 66 kg

DRUGS (6)
  1. MYFORTIC [Suspect]
     Dosage: 360 MG, BID
     Route: 048
     Dates: start: 20110422
  2. TACROLIMUS [Suspect]
     Indication: RENAL TRANSPLANT
     Dosage: UNK
     Route: 048
     Dates: start: 20110202
  3. LOPRESSOR [Concomitant]
     Dosage: UNK
     Dates: start: 20110207
  4. VALCYTE [Suspect]
     Indication: INFECTION PROPHYLAXIS
     Dosage: UNK
     Dates: start: 20110206, end: 20110417
  5. MYCELEX [Concomitant]
     Dosage: UNK
     Dates: start: 20110207
  6. MYFORTIC [Suspect]
     Indication: RENAL TRANSPLANT
     Dosage: UNK
     Route: 048
     Dates: start: 20110204, end: 20110417

REACTIONS (1)
  - FEBRILE NEUTROPENIA [None]
